FAERS Safety Report 12519158 (Version 5)
Quarter: 2018Q1

REPORT INFORMATION
  Report Type: Spontaneous
  Country: IL (occurrence: IL)
  Receive Date: 20160630
  Receipt Date: 20180125
  Transmission Date: 20180508
  Serious: Yes (Other)
  Sender: FDA-Public Use
  Company Number: IL-ASTRAZENECA-2016SE70215

PATIENT
  Age: 80 Year
  Sex: Male

DRUGS (3)
  1. TAGRISSO [Suspect]
     Active Substance: OSIMERTINIB
     Indication: BRAIN CANCER METASTATIC
     Route: 048
     Dates: start: 20160526, end: 201711
  2. TAGRISSO [Suspect]
     Active Substance: OSIMERTINIB
     Indication: NEOPLASM MALIGNANT
     Route: 048
     Dates: start: 20160526, end: 201711
  3. CLEXAN [Concomitant]
     Active Substance: ENOXAPARIN SODIUM
     Indication: VENTRICULAR FIBRILLATION

REACTIONS (10)
  - Autoimmune retinopathy [Not Recovered/Not Resolved]
  - Malignant melanoma [Unknown]
  - Blindness [Not Recovered/Not Resolved]
  - Pain in extremity [Unknown]
  - Insomnia [Unknown]
  - Vision blurred [Unknown]
  - Nail disorder [Unknown]
  - Drug dose omission [Unknown]
  - Malignant neoplasm progression [Unknown]
  - Cardiac fibrillation [Unknown]

NARRATIVE: CASE EVENT DATE: 201606
